FAERS Safety Report 21793843 (Version 2)
Quarter: 2022Q4

REPORT INFORMATION
  Report Type: Spontaneous
  Country: CA (occurrence: CA)
  Receive Date: 20221229
  Receipt Date: 20221230
  Transmission Date: 20230112
  Serious: No
  Sender: FDA-Public Use
  Company Number: CA-PFIZER INC-PV202200127274

PATIENT

DRUGS (1)
  1. DALTEPARIN SODIUM [Suspect]
     Active Substance: DALTEPARIN SODIUM
     Dosage: DALTEPARIN 15000 UNITS/0.6 ML INJECTION SYRINGE WITH

REACTIONS (1)
  - Device operational issue [Unknown]
